FAERS Safety Report 14959220 (Version 1)
Quarter: 2018Q2

REPORT INFORMATION
  Report Type: Spontaneous
  Country: FR (occurrence: FR)
  Receive Date: 20180531
  Receipt Date: 20180531
  Transmission Date: 20180711
  Serious: Yes (Disabling, Other)
  Sender: FDA-Public Use
  Company Number: FR-PFIZER INC-2018216406

PATIENT
  Age: 62 Year
  Sex: Male

DRUGS (22)
  1. LYRICA [Concomitant]
     Active Substance: PREGABALIN
     Dosage: STRENGTH: 25
     Route: 048
     Dates: start: 201505
  2. TRIATEC /00885601/ [Concomitant]
     Active Substance: RAMIPRIL
     Dosage: STRENGTH: 0.5
     Route: 048
     Dates: start: 2013
  3. SIFROL [Interacting]
     Active Substance: PRAMIPEXOLE
     Dosage: 1.05 MG, 1X/DAY (STRENGTH: 1.05 MG)
     Route: 048
     Dates: start: 20170225
  4. VENTOLINE /00139501/ [Concomitant]
     Active Substance: ALBUTEROL
     Dosage: 2 DF, AS NEEDED
     Route: 065
     Dates: start: 2015
  5. VITAMIN B1 AND B6 [Concomitant]
     Active Substance: PYRIDOXINE HYDROCHLORIDE\THIAMINE HYDROCHLORIDE
     Dosage: 2 DF IN THE MORNING
     Route: 048
     Dates: start: 20160608
  6. AMLOR [Suspect]
     Active Substance: AMLODIPINE BESYLATE
     Route: 048
     Dates: start: 2013
  7. TAHOR [Concomitant]
     Active Substance: ATORVASTATIN CALCIUM
     Route: 065
     Dates: start: 2013
  8. DOMPERIDONE [Concomitant]
     Active Substance: DOMPERIDONE
     Route: 065
     Dates: start: 201603
  9. SERETIDE [Concomitant]
     Active Substance: FLUTICASONE PROPIONATE\SALMETEROL XINAFOATE
     Dosage: STRENGTH: 500
     Route: 065
     Dates: start: 2015
  10. TRIVASTAL /00397201/ [Concomitant]
     Active Substance: PIRIBEDIL
     Route: 065
     Dates: start: 2015
  11. RIMIFON [Interacting]
     Active Substance: ISONIAZID
     Indication: SILICOTUBERCULOSIS
     Dosage: 2 DF, 1X/DAY
     Route: 065
     Dates: start: 20161212, end: 20161215
  12. SIFROL [Interacting]
     Active Substance: PRAMIPEXOLE
     Dosage: 0.52 MG, 1X/DAY (STRENGTH: 0.52 MG)
     Route: 048
     Dates: end: 20170225
  13. NEUPRO [Interacting]
     Active Substance: ROTIGOTINE
     Route: 062
     Dates: start: 20150903
  14. LEVITRA [Concomitant]
     Active Substance: VARDENAFIL HYDROCHLORIDE TRIHYDRATE
     Route: 065
     Dates: start: 201507
  15. LEDERFOLINE [Concomitant]
     Active Substance: LEUCOVORIN CALCIUM
     Route: 065
  16. SIFROL [Interacting]
     Active Substance: PRAMIPEXOLE
     Indication: PARKINSONISM
     Dosage: 0.26 MG, 1X/DAY (STRENGTH: 1.05 MG)
     Route: 048
     Dates: start: 20150723
  17. DEXAMBUTOL [Concomitant]
     Active Substance: ETHAMBUTOL HYDROCHLORIDE
     Dosage: 2DF IN THE MORNING, FASTINGSTRENGTH: 500 MG
     Route: 048
     Dates: start: 20160608
  18. RIFATER [Interacting]
     Active Substance: ISONIAZID\PYRAZINAMIDE\RIFAMPIN
     Indication: SILICOTUBERCULOSIS
     Dosage: 5 DF, 1X/DAY
     Route: 065
     Dates: start: 20160612, end: 20160812
  19. AZILECT [Interacting]
     Active Substance: RASAGILINE MESYLATE
     Indication: PARKINSONISM
     Dosage: 1 DF, 1X/DAY (STRENGTH: 1 MG)
     Dates: start: 201412
  20. AUGMENTIN [Concomitant]
     Active Substance: AMOXICILLIN\CLAVULANATE POTASSIUM
  21. RIFINAH [Interacting]
     Active Substance: ISONIAZID\RIFAMPIN
     Indication: SILICOTUBERCULOSIS
     Dosage: DF, FASTING, EITHER 1H BEFORE BREAKFAST OR 4H BEFORE DINNER
     Dates: start: 20160812
  22. KARDEGIC [Concomitant]
     Active Substance: ASPIRIN DL-LYSINE
     Dosage: STRENGTH: 160
     Route: 065
     Dates: start: 2013

REACTIONS (27)
  - Constipation [Not Recovered/Not Resolved]
  - Muscular weakness [Not Recovered/Not Resolved]
  - Extrapyramidal disorder [Not Recovered/Not Resolved]
  - Melanocytic naevus [Not Recovered/Not Resolved]
  - Pain [Unknown]
  - Supraventricular tachycardia [Unknown]
  - Nervous system disorder [Recovering/Resolving]
  - Condition aggravated [Unknown]
  - Disinhibition [Not Recovered/Not Resolved]
  - Suicidal ideation [Not Recovered/Not Resolved]
  - Crying [Not Recovered/Not Resolved]
  - Gait disturbance [Unknown]
  - Hypersomnia [Not Recovered/Not Resolved]
  - Condition aggravated [Not Recovered/Not Resolved]
  - Postural tremor [Not Recovered/Not Resolved]
  - Vision blurred [Not Recovered/Not Resolved]
  - Potentiating drug interaction [Not Recovered/Not Resolved]
  - Delusion [Not Recovered/Not Resolved]
  - Fatigue [Not Recovered/Not Resolved]
  - Malaise [Not Recovered/Not Resolved]
  - Compulsive shopping [Not Recovered/Not Resolved]
  - Musculoskeletal disorder [Not Recovered/Not Resolved]
  - Weight decreased [Unknown]
  - Myalgia [Unknown]
  - Neuropathy peripheral [Unknown]
  - Dizziness [Unknown]
  - Loss of personal independence in daily activities [Unknown]

NARRATIVE: CASE EVENT DATE: 201507
